FAERS Safety Report 21549026 (Version 1)
Quarter: 2022Q4

REPORT INFORMATION
  Report Type: Report from Study
  Country: US (occurrence: US)
  Receive Date: 20221103
  Receipt Date: 20221103
  Transmission Date: 20230112
  Serious: No
  Sender: FDA-Public Use
  Company Number: US-ABBVIE-22K-163-4531833-00

PATIENT
  Age: 56 Year
  Sex: Female

DRUGS (1)
  1. SKYRIZI [Suspect]
     Active Substance: RISANKIZUMAB-RZAA
     Indication: Crohn^s disease
     Route: 042
     Dates: start: 20220901

REACTIONS (3)
  - Cough [Recovered/Resolved]
  - Blood pressure increased [Unknown]
  - Throat irritation [Recovered/Resolved]

NARRATIVE: CASE EVENT DATE: 20220901
